FAERS Safety Report 5194843-7 (Version None)
Quarter: 2006Q4

REPORT INFORMATION
  Report Type: 
  Country: None (occurrence: None)
  Receive Date: 20061229
  Receipt Date: 20061220
  Transmission Date: 20070319
  Serious: Yes (Hospitalization, Other)
  Sender: FDA-Public Use
  Company Number: 2006PK02700

PATIENT
  Age: 18129 Day
  Sex: Female
  Weight: 80 kg

DRUGS (2)
  1. NOLVADEX [Suspect]
     Indication: BREAST CANCER
     Route: 048
     Dates: start: 20050901
  2. ZOLADEX [Suspect]
     Indication: BREAST CANCER
     Route: 058
     Dates: start: 20051001

REACTIONS (3)
  - CERVICAL POLYP [None]
  - ENDOMETRIAL HYPERPLASIA [None]
  - UTERINE POLYP [None]
